FAERS Safety Report 20142615 (Version 1)
Quarter: 2021Q4

REPORT INFORMATION
  Report Type: Other
  Country: US (occurrence: None)
  Receive Date: 20211202
  Receipt Date: 20211202
  Transmission Date: 20220303
  Serious: No
  Sender: FDA-Public Use
  Company Number: US-ROCHE-2806410

PATIENT
  Age: 34 Year
  Sex: Female

DRUGS (3)
  1. DIAZEPAM [Suspect]
     Active Substance: DIAZEPAM
     Indication: Spinal cord injury
     Route: 065
  2. DITROPAN [Concomitant]
     Active Substance: OXYBUTYNIN CHLORIDE
  3. LIORESAL [Concomitant]
     Active Substance: BACLOFEN

REACTIONS (3)
  - Somnolence [Unknown]
  - Memory impairment [Unknown]
  - Disturbance in attention [Unknown]
